FAERS Safety Report 5479408-1 (Version None)
Quarter: 2007Q4

REPORT INFORMATION
  Report Type: 
  Country: None (occurrence: None)
  Receive Date: 20071003
  Receipt Date: 20071003
  Transmission Date: 20080405
  Serious: Yes (Life-Threatening, Hospitalization)
  Sender: FDA-Public Use
  Company Number: None

PATIENT
  Age: 56 Year
  Sex: Female

DRUGS (9)
  1. WARFARIN SODIUM [Suspect]
     Indication: DEEP VEIN THROMBOSIS
     Dosage: DAILY PO
     Route: 048
  2. SYNTHROID [Concomitant]
  3. LEXAPRO [Concomitant]
  4. NEXIUM [Concomitant]
  5. VYTORIN [Concomitant]
  6. ADVAIR DISKUS 100/50 [Concomitant]
  7. TRAZODONE HCL [Concomitant]
  8. ULTRAM [Concomitant]
  9. RITALIN [Concomitant]

REACTIONS (3)
  - COAGULOPATHY [None]
  - CONVULSION [None]
  - HAEMORRHAGE INTRACRANIAL [None]
